FAERS Safety Report 6220266-5 (Version None)
Quarter: 2009Q2

REPORT INFORMATION
  Report Type: 
  Country: None (occurrence: None)
  Receive Date: 20090605
  Receipt Date: 20090526
  Transmission Date: 20091009
  Serious: Yes (Other)
  Sender: FDA-Public Use
  Company Number: 2009-0915

PATIENT
  Age: 20 Year
  Sex: Male

DRUGS (1)
  1. DYSPORT [Suspect]
     Indication: CLONUS
     Dosage: 500 UNITES, NOT REPORTED

REACTIONS (2)
  - DYSPHAGIA [None]
  - OFF LABEL USE [None]
